FAERS Safety Report 12984565 (Version 1)
Quarter: 2016Q4

REPORT INFORMATION
  Report Type: Report from Study
  Country: GB (occurrence: GB)
  Receive Date: 20161129
  Receipt Date: 20161129
  Transmission Date: 20170207
  Serious: Yes (Other)
  Sender: FDA-Public Use
  Company Number: GB-GILEAD-2016-0245032

PATIENT
  Age: 55 Year
  Sex: Male

DRUGS (15)
  1. DOLUTEGRAVIR [Concomitant]
     Active Substance: DOLUTEGRAVIR
  2. MARAVIROC [Concomitant]
     Active Substance: MARAVIROC
  3. OMEPRAZOLE. [Concomitant]
     Active Substance: OMEPRAZOLE
  4. PEGASYS [Concomitant]
     Active Substance: PEGINTERFERON ALFA-2A
  5. BISOPROLOL [Concomitant]
     Active Substance: BISOPROLOL
  6. ATORVASTATIN [Concomitant]
     Active Substance: ATORVASTATIN
  7. EMTRICITABINE/TENOFOVIR DISOPROXIL FUMARATE [Suspect]
     Active Substance: EMTRICITABINE\TENOFOVIR DISOPROXIL FUMARATE
     Indication: HIV INFECTION
     Dosage: 1 DF, QD
     Route: 065
  8. ASPIRIN                            /00002701/ [Concomitant]
     Active Substance: ASPIRIN
  9. CLOPIDOGREL [Concomitant]
     Active Substance: CLOPIDOGREL BISULFATE
  10. KALETRA [Concomitant]
     Active Substance: LOPINAVIR\RITONAVIR
  11. ETRAVIRINE [Concomitant]
     Active Substance: ETRAVIRINE
  12. ACICLOVIR [Concomitant]
     Active Substance: ACYCLOVIR
  13. COTRIMOXAZOLE [Concomitant]
     Active Substance: SULFAMETHOXAZOLE\TRIMETHOPRIM
  14. ZIDOVUDINE. [Concomitant]
     Active Substance: ZIDOVUDINE
  15. RAMIPRIL. [Concomitant]
     Active Substance: RAMIPRIL

REACTIONS (3)
  - Nephrotic syndrome [Not Recovered/Not Resolved]
  - Urine protein/creatinine ratio abnormal [Not Recovered/Not Resolved]
  - Blood creatinine decreased [Not Recovered/Not Resolved]
